FAERS Safety Report 6370917-X (Version None)
Quarter: 2009Q3

REPORT INFORMATION
  Report Type: 
  Country: None (occurrence: None)
  Receive Date: 20090923
  Receipt Date: 20070911
  Transmission Date: 20100115
  Serious: Yes (Other)
  Sender: FDA-Public Use
  Company Number: US-ASTRAZENECA-2006UW22746

PATIENT
  Sex: Male
  Weight: 113.4 kg

DRUGS (16)
  1. SEROQUEL [Suspect]
     Dosage: 100-600 MG DAILY
     Route: 048
     Dates: start: 20000610
  2. SEROQUEL [Suspect]
     Route: 048
     Dates: end: 20070115
  3. ABILIFY [Concomitant]
  4. BACLOFEN [Concomitant]
     Dates: start: 20000610
  5. IBUPROFEN [Concomitant]
  6. COGENTIN [Concomitant]
     Dosage: STRENGTH-1MG, 2MG DOSE-1MG, ONCE AT NIGHT
     Dates: start: 20000426
  7. PEPCID [Concomitant]
     Dates: start: 20000610
  8. ULTRAM [Concomitant]
     Indication: PAIN
     Dosage: DOSE-50 MG, 1PO Q 4-6 HOURS AS REQUIRED
     Route: 048
     Dates: start: 20001227
  9. DIAZEPAM [Concomitant]
     Dates: start: 20010215
  10. PROPO-N/APAP [Concomitant]
     Dosage: 100-650
     Dates: start: 20010219
  11. BUSPIRONE HCL [Concomitant]
     Dates: start: 20010822
  12. APAP W/ CODEINE [Concomitant]
     Dosage: STRENGTH-300 MG/30 MG
     Dates: start: 20010921
  13. PRILOSEC [Concomitant]
     Route: 048
     Dates: start: 20040224
  14. MOBIC [Concomitant]
     Route: 048
     Dates: start: 20040224
  15. DILAUDID [Concomitant]
     Indication: PAIN
     Dates: start: 20050924
  16. NORCURON [Concomitant]
     Route: 042
     Dates: start: 20050924

REACTIONS (2)
  - DIABETES MELLITUS [None]
  - NEUROLEPTIC MALIGNANT SYNDROME [None]
